FAERS Safety Report 4819916-7 (Version None)
Quarter: 2005Q4

REPORT INFORMATION
  Report Type: 
  Country: None (occurrence: None)
  Receive Date: 20051102
  Receipt Date: 20051024
  Transmission Date: 20060501
  Serious: Yes (Life-Threatening)
  Sender: FDA-Public Use
  Company Number: 2005144864

PATIENT
  Age: 65 Year
  Sex: Female
  Weight: 90 kg

DRUGS (5)
  1. FRAGMIN [Suspect]
     Indication: KNEE ARTHROPLASTY
     Dosage: 5000I.U. (1 IN 1 D), SUBCUTANEOUS
     Route: 058
     Dates: start: 20051010
  2. VALSARTAN [Concomitant]
  3. FUROHEXAL (FUROSEMIDE) [Concomitant]
  4. PANTOPRAZOL (PANTOPRAZOLE) [Concomitant]
  5. DICLOMELAN (DICLOFENAC SODIUM) [Concomitant]

REACTIONS (1)
  - PULMONARY EMBOLISM [None]
